FAERS Safety Report 19505575 (Version 1)
Quarter: 2021Q3

REPORT INFORMATION
  Report Type: Spontaneous
  Country: US (occurrence: US)
  Receive Date: 20210707
  Receipt Date: 20210707
  Transmission Date: 20211014
  Serious: No
  Sender: FDA-Public Use
  Company Number: US-PURDUE-USA-2020-0151233

PATIENT
  Sex: Male

DRUGS (4)
  1. OXYCODONE HYDROCHLORIDE (SIMILAR TO NDA 22?272) [Suspect]
     Active Substance: OXYCODONE HYDROCHLORIDE
     Indication: PRODUCT USED FOR UNKNOWN INDICATION
     Route: 048
  2. HYDROCODONE BITARTRATE (SIMILAR TO NDA 206627) [Suspect]
     Active Substance: HYDROCODONE BITARTRATE
     Indication: BACK PAIN
     Dosage: UNK, BID(STRENGTH 7.5/325 MG)
     Route: 048
     Dates: start: 2015
  3. MORPHINE SULFATE (SIMILAR TO NDA 19?516) [Suspect]
     Active Substance: MORPHINE SULFATE
     Indication: BACK PAIN
     Dosage: 120 MG, BID(STRENGTHS?50MG, 60MG,75MG,100MG)
     Route: 048
     Dates: start: 2000, end: 2015
  4. MORPHINE SULFATE (SIMILAR TO NDA 19?516) [Suspect]
     Active Substance: MORPHINE SULFATE
     Dosage: 200 MG, BID(STRENGTHS?50MG, 60MG,75MG,100MG)
     Route: 048
     Dates: start: 2000, end: 2015

REACTIONS (3)
  - Memory impairment [Unknown]
  - Unevaluable event [Unknown]
  - Hyperhidrosis [Unknown]
